FAERS Safety Report 15601638 (Version 1)
Quarter: 2018Q4

REPORT INFORMATION
  Report Type: Spontaneous
  Country: US (occurrence: US)
  Receive Date: 20181108
  Receipt Date: 20181108
  Transmission Date: 20190205
  Serious: Yes (Hospitalization)
  Sender: FDA-Public Use
  Company Number: None

PATIENT
  Age: 51 Year
  Sex: Female
  Weight: 85.2 kg

DRUGS (1)
  1. JARDIANCE [Suspect]
     Active Substance: EMPAGLIFLOZIN
     Indication: TYPE 2 DIABETES MELLITUS
     Route: 048
     Dates: end: 20181022

REACTIONS (6)
  - Pancreatitis [None]
  - Pain [None]
  - Nausea [None]
  - Acute kidney injury [None]
  - Haemodialysis [None]
  - Therapy cessation [None]

NARRATIVE: CASE EVENT DATE: 20181022
